FAERS Safety Report 18274948 (Version 2)
Quarter: 2021Q1

REPORT INFORMATION
  Report Type: Report from Study
  Country: DE (occurrence: DE)
  Receive Date: 20200916
  Receipt Date: 20210121
  Transmission Date: 20210419
  Serious: Yes (Other)
  Sender: FDA-Public Use
  Company Number: DE-BRISTOL-MYERS SQUIBB COMPANY-BMS-2020-075603

PATIENT
  Age: 49 Year
  Sex: Female

DRUGS (3)
  1. IPILIMUMAB [Suspect]
     Active Substance: IPILIMUMAB
     Indication: MALIGNANT MELANOMA
     Dosage: 430 MILLIGRAM, Q3WK
     Route: 065
     Dates: start: 20200130, end: 20200320
  2. NIVOLUMAB [Suspect]
     Active Substance: NIVOLUMAB
     Indication: MALIGNANT MELANOMA
     Dosage: 144 MILLIGRAM, Q3WK
     Route: 042
     Dates: start: 20200130, end: 20200320
  3. NIVOLUMAB [Suspect]
     Active Substance: NIVOLUMAB
     Dosage: 480 MILLIGRAM
     Route: 065
     Dates: start: 20200518

REACTIONS (1)
  - Immune-mediated thyroiditis [Recovered/Resolved]

NARRATIVE: CASE EVENT DATE: 20200204
